FAERS Safety Report 15249531 (Version 1)
Quarter: 2018Q3

REPORT INFORMATION
  Report Type: Spontaneous
  Country: US (occurrence: US)
  Receive Date: 20180807
  Receipt Date: 20180807
  Transmission Date: 20181010
  Serious: No
  Sender: FDA-Public Use
  Company Number: US-PERRIGO-18US004483

PATIENT
  Sex: Male

DRUGS (1)
  1. LORATADINE. [Suspect]
     Active Substance: LORATADINE
     Indication: PRODUCT USED FOR UNKNOWN INDICATION
     Dosage: UNKNOWN, UNKNOWN
     Route: 048
     Dates: start: 20180416

REACTIONS (6)
  - Sinus pain [Unknown]
  - Drug ineffective [Unknown]
  - Throat irritation [Unknown]
  - Condition aggravated [Unknown]
  - Somnolence [Unknown]
  - Dyspnoea [Unknown]

NARRATIVE: CASE EVENT DATE: 201804
